FAERS Safety Report 8184141-1 (Version None)
Quarter: 2012Q1

REPORT INFORMATION
  Report Type: 
  Country: None (occurrence: None)
  Receive Date: 20120305
  Receipt Date: 20120302
  Transmission Date: 20120608
  Serious: Yes (Other)
  Sender: FDA-Public Use
  Company Number: US-PFIZER INC-2012056904

PATIENT
  Sex: Female
  Weight: 77.098 kg

DRUGS (2)
  1. ARTHROTEC [Suspect]
     Indication: NECK PAIN
  2. ARTHROTEC [Suspect]
     Indication: MIGRAINE
     Dosage: 200 UG/75 MG, 1X/DAY
     Route: 048
     Dates: start: 19980101

REACTIONS (3)
  - HYPERTENSION [None]
  - OSTEOMYELITIS [None]
  - BLOOD CHOLESTEROL INCREASED [None]
